FAERS Safety Report 23379175 (Version 2)
Quarter: 2024Q1

REPORT INFORMATION
  Report Type: Spontaneous
  Country: ES (occurrence: ES)
  Receive Date: 20240108
  Receipt Date: 20240109
  Transmission Date: 20240409
  Serious: Yes (Other)
  Sender: FDA-Public Use
  Company Number: ES-SUN PHARMACEUTICAL INDUSTRIES LTD-2023R1-424043

PATIENT
  Sex: Female

DRUGS (4)
  1. IMATINIB [Suspect]
     Active Substance: IMATINIB
     Indication: Diffuse cutaneous mastocytosis
     Dosage: 100 MILLIGRAM, QD (100 MILLIGRAM, DAILY)
     Route: 065
  2. CROMOLYN SODIUM [Concomitant]
     Active Substance: CROMOLYN SODIUM
     Indication: Diffuse cutaneous mastocytosis
     Dosage: 200 MILLIGRAM, BID
     Route: 065
  3. KETOTIFEN [Concomitant]
     Active Substance: KETOTIFEN
     Indication: Diffuse cutaneous mastocytosis
     Dosage: 1 MILLIGRAM, BID
     Route: 065
  4. DEXCHLORPHENIRAMINE MALEATE [Concomitant]
     Active Substance: DEXCHLORPHENIRAMINE MALEATE
     Indication: Diffuse cutaneous mastocytosis
     Dosage: UNK
     Route: 048

REACTIONS (11)
  - Cardiomyopathy [Unknown]
  - Anaemia [Unknown]
  - Growth retardation [Unknown]
  - Thrombocytopenia [Unknown]
  - Granulocytopenia [Unknown]
  - Oedema [Unknown]
  - Nausea [Unknown]
  - Rash [Unknown]
  - Transaminases increased [Unknown]
  - Diarrhoea [Unknown]
  - Vomiting [Unknown]
